FAERS Safety Report 21009304 (Version 4)
Quarter: 2022Q3

REPORT INFORMATION
  Report Type: Report from Study
  Country: IT (occurrence: None)
  Receive Date: 20220627
  Receipt Date: 20220715
  Transmission Date: 20221026
  Serious: Yes (Hospitalization)
  Sender: FDA-Public Use
  Company Number: IT-ROCHE-3122272

PATIENT
  Age: 70 Year
  Sex: Female
  Weight: 76 kg

DRUGS (7)
  1. ATEZOLIZUMAB [Suspect]
     Active Substance: ATEZOLIZUMAB
     Indication: Neoplasm malignant
     Dosage: SUBSEQUENT DOSES ADMINISTERED ON CYCLE 2: 20/APR/2022 , 04/MAY/2022, CYCLE 3: 18/MAY/2022 ATEZOLIZUM
     Route: 041
     Dates: start: 20220325
  2. COBIMETINIB [Suspect]
     Active Substance: COBIMETINIB
     Indication: Neoplasm malignant
     Dosage: SUBSEQUENT DOSES ADMINISTERED ON CYCLE 2: 20/APR/2022 COBIMETINIB, CYCLE 3: 18/MAY/2022  REDUCED TO
     Route: 048
     Dates: start: 20220325
  3. OMEPRAZOLE [Concomitant]
     Active Substance: OMEPRAZOLE
     Dates: start: 202109
  4. PREDNISONE [Concomitant]
     Active Substance: PREDNISONE
     Dosage: 25 MG HALF TABLET
     Dates: start: 202105
  5. FENTALGON [Concomitant]
     Dates: start: 20211201
  6. ABSTRAL [Concomitant]
     Active Substance: FENTANYL CITRATE
     Dates: start: 202112
  7. LASIX [Concomitant]
     Active Substance: FUROSEMIDE
     Dates: start: 202201

REACTIONS (3)
  - Lethargy [Recovered/Resolved]
  - Confusional state [Recovered/Resolved]
  - Pyrexia [Recovered/Resolved]

NARRATIVE: CASE EVENT DATE: 20220606
